FAERS Safety Report 10132269 (Version 2)
Quarter: 2014Q2

REPORT INFORMATION
  Report Type: Spontaneous
  Country: TR (occurrence: TR)
  Receive Date: 20140428
  Receipt Date: 20140516
  Transmission Date: 20141212
  Serious: Yes (Hospitalization, Other)
  Sender: FDA-Public Use
  Company Number: TR-NOVOPROD-407487

PATIENT
  Age: 17 Year
  Sex: Male
  Weight: 36.5 kg

DRUGS (3)
  1. NORDITROPIN SIMPLEXX [Suspect]
     Indication: GROWTH HORMONE DEFICIENCY
     Dosage: 0.9 MG, QD
     Route: 065
     Dates: end: 20140415
  2. NOVORAPID FLEXPEN [Suspect]
     Indication: DIABETES MELLITUS
     Dosage: 15 U, QD
     Route: 065
  3. LANTUS [Suspect]
     Indication: DIABETES MELLITUS
     Dosage: 12 U, QD (LANTUS SOLOSTAR)
     Route: 065

REACTIONS (4)
  - Blindness [Unknown]
  - Hyperglycaemia [Recovered/Resolved with Sequelae]
  - Loss of consciousness [Recovered/Resolved]
  - Loss of consciousness [Recovered/Resolved]
